FAERS Safety Report 22537532 (Version 1)
Quarter: 2023Q2

REPORT INFORMATION
  Report Type: Spontaneous
  Country: US (occurrence: US)
  Receive Date: 20230608
  Receipt Date: 20230608
  Transmission Date: 20230721
  Serious: No
  Sender: FDA-Public Use
  Company Number: US-PFIZER INC-202300210272

PATIENT
  Age: 75 Year
  Sex: Female
  Weight: 50.8 kg

DRUGS (2)
  1. IBRANCE [Suspect]
     Active Substance: PALBOCICLIB
     Indication: Neoplasm malignant
     Dosage: EVERY MORNING FOR 3 WEEKS, THEN 1 WEEK OFF
     Dates: start: 202305
  2. LETROZOLE [Concomitant]
     Active Substance: LETROZOLE
     Indication: Chemotherapy
     Dosage: 2.5 MG, 1X/DAY
     Dates: start: 202305

REACTIONS (2)
  - Lip dry [Recovering/Resolving]
  - Lip exfoliation [Recovering/Resolving]

NARRATIVE: CASE EVENT DATE: 20230501
